FAERS Safety Report 7406522-3 (Version None)
Quarter: 2011Q2

REPORT INFORMATION
  Report Type: 
  Country: None (occurrence: None)
  Receive Date: 20110405
  Receipt Date: 20110405
  Transmission Date: 20111010
  Serious: Yes (Other)
  Sender: FDA-Public Use
  Company Number: None

PATIENT
  Age: 56 Year
  Sex: Male
  Weight: 89.8 kg

DRUGS (2)
  1. TREANDA 100 MG CEPHALON [Suspect]
     Indication: CHRONIC LYMPHOCYTIC LEUKAEMIA
     Dosage: 200 MG IV  4 DOSES 1/26-27, 2/24-25
     Route: 042
  2. RITUXIMAB [Concomitant]

REACTIONS (3)
  - RASH PAPULAR [None]
  - OEDEMA PERIPHERAL [None]
  - BLISTER [None]
